FAERS Safety Report 23906315 (Version 1)
Quarter: 2024Q2

REPORT INFORMATION
  Report Type: Spontaneous
  Country: DE (occurrence: DE)
  Receive Date: 20240528
  Receipt Date: 20240528
  Transmission Date: 20240716
  Serious: Yes (Death)
  Sender: FDA-Public Use
  Company Number: DE-BoehringerIngelheim-2024-BI-029927

PATIENT
  Age: 74 Year
  Sex: Male

DRUGS (3)
  1. AFATINIB [Suspect]
     Active Substance: AFATINIB
     Indication: Non-small cell lung cancer stage IV
     Dates: start: 201804, end: 202001
  2. AFATINIB [Suspect]
     Active Substance: AFATINIB
     Indication: EGFR gene mutation
  3. AFATINIB [Suspect]
     Active Substance: AFATINIB
     Dates: start: 202002

REACTIONS (6)
  - Death [Fatal]
  - Therapy partial responder [Unknown]
  - General physical health deterioration [Unknown]
  - Diarrhoea [Unknown]
  - Rash [Unknown]
  - Neutropenia [Unknown]

NARRATIVE: CASE EVENT DATE: 20180801
